FAERS Safety Report 16461454 (Version 1)
Quarter: 2019Q2

REPORT INFORMATION
  Report Type: Other
  Country: NL (occurrence: ES)
  Receive Date: 20190620
  Receipt Date: 20190620
  Transmission Date: 20190711
  Serious: Yes (Other)
  Sender: FDA-Public Use
  Company Number: NL-KOWA-19EU001559

PATIENT
  Age: 81 Year
  Sex: Female
  Weight: 105 kg

DRUGS (3)
  1. XARELTO [Concomitant]
     Active Substance: RIVAROXABAN
     Indication: PRODUCT USED FOR UNKNOWN INDICATION
     Dosage: 20 MG (DOSAGE TEXT 0-1-0-0)
     Dates: start: 20151123
  2. LIVAZO [Suspect]
     Active Substance: PITAVASTATIN CALCIUM
     Indication: PRODUCT USED FOR UNKNOWN INDICATION
     Dosage: 2 MG (DOSAGE TEXT: 0-0-1-0)
     Route: 048
     Dates: start: 20180531, end: 20180611
  3. ALIPZA [Suspect]
     Active Substance: PITAVASTATIN
     Indication: PRODUCT USED FOR UNKNOWN INDICATION
     Dosage: 2 MG (DOSAGE TEXT 0-0-1-0)
     Route: 048
     Dates: start: 20180511, end: 20180531

REACTIONS (1)
  - Epicondylitis [Unknown]

NARRATIVE: CASE EVENT DATE: 201805
